FAERS Safety Report 13460304 (Version 4)
Quarter: 2017Q3

REPORT INFORMATION
  Report Type: Report from Study
  Country: None (occurrence: US)
  Receive Date: 20170420
  Receipt Date: 20170706
  Transmission Date: 20171127
  Serious: Yes (Hospitalization)
  Sender: FDA-Public Use
  Company Number: US-ABBVIE-17K-163-1946067-00

PATIENT
  Age: 47 Year
  Sex: Male
  Weight: 60.84 kg

DRUGS (2)
  1. HUMIRA [Suspect]
     Active Substance: ADALIMUMAB
     Indication: CROHN^S DISEASE
     Route: 058
     Dates: start: 201610, end: 2017
  2. HUMIRA [Suspect]
     Active Substance: ADALIMUMAB
     Route: 058
     Dates: start: 201702, end: 201705

REACTIONS (11)
  - Pyrexia [Recovered/Resolved]
  - Abscess [Recovering/Resolving]
  - Weight decreased [Recovering/Resolving]
  - Intestinal fistula [Not Recovered/Not Resolved]
  - Abdominal pain [Not Recovered/Not Resolved]
  - Sepsis [Recovering/Resolving]
  - Abdominal pain [Recovered/Resolved]
  - Abscess intestinal [Not Recovered/Not Resolved]
  - Fungal infection [Recovering/Resolving]
  - Malabsorption [Recovering/Resolving]
  - Enterocolitis [Recovering/Resolving]

NARRATIVE: CASE EVENT DATE: 201610
